FAERS Safety Report 25801922 (Version 1)
Quarter: 2025Q3

REPORT INFORMATION
  Report Type: Spontaneous
  Country: RU (occurrence: RU)
  Receive Date: 20250915
  Receipt Date: 20250915
  Transmission Date: 20251021
  Serious: Yes (Other)
  Sender: ACCORD
  Company Number: RU-MLMSERVICE-20250827-PI626814-00082-1

PATIENT
  Age: 2 Year

DRUGS (3)
  1. CARBOPLATIN [Suspect]
     Active Substance: CARBOPLATIN
     Indication: Bone marrow conditioning regimen
  2. ETOPOSIDE [Suspect]
     Active Substance: ETOPOSIDE
     Indication: Bone marrow conditioning regimen
  3. MELPHALAN [Suspect]
     Active Substance: MELPHALAN
     Indication: Bone marrow conditioning regimen

REACTIONS (4)
  - Gastrointestinal inflammation [Unknown]
  - Impaired gastric emptying [Unknown]
  - Hepatotoxicity [Unknown]
  - Infection [Unknown]
